FAERS Safety Report 9014198 (Version 2)
Quarter: 2013Q1

REPORT INFORMATION
  Report Type: Report from Study
  Country: FR (occurrence: FR)
  Receive Date: 20130115
  Receipt Date: 20130130
  Transmission Date: 20140127
  Serious: Yes (Other)
  Sender: FDA-Public Use
  Company Number: FR-VERTEX PHARMACEUTICALS INC.-2013-000549

PATIENT
  Age: 60 Year
  Sex: Female
  Weight: 86 kg

DRUGS (4)
  1. VX-950 (TELAPREVIR) [Suspect]
     Indication: HEPATITIS C
     Dosage: UNK
     Route: 048
     Dates: end: 201206
  2. COPEGUS [Concomitant]
     Indication: HEPATITIS C
     Route: 048
     Dates: end: 201206
  3. PEGASYS [Concomitant]
     Indication: HEPATITIS C
     Route: 048
     Dates: end: 201206
  4. DEROXAT [Concomitant]
     Indication: DEPRESSION
     Dosage: 20 MG, QD
     Route: 048
     Dates: start: 20070824

REACTIONS (1)
  - Hepatocellular carcinoma [Recovered/Resolved]
